FAERS Safety Report 5615815-1 (Version None)
Quarter: 2008Q1

REPORT INFORMATION
  Report Type: 
  Country: None (occurrence: None)
  Receive Date: 20080201
  Receipt Date: 20080130
  Transmission Date: 20080703
  Serious: Yes (Hospitalization)
  Sender: FDA-Public Use
  Company Number: 2007SP009371

PATIENT
  Age: 79 Year
  Sex: Male
  Weight: 54 kg

DRUGS (7)
  1. TEMODAL (EMOZOLOMIDE) (TEMOZOLOMIDE) [Suspect]
     Indication: GLIOBLASTOMA MULTIFORME
     Dosage: 75 MG/M2;QD;PO; 150 MG/M2;QD;PO
     Route: 048
     Dates: start: 20070205, end: 20070305
  2. TEMODAL (EMOZOLOMIDE) (TEMOZOLOMIDE) [Suspect]
     Indication: GLIOBLASTOMA MULTIFORME
     Dosage: 75 MG/M2;QD;PO; 150 MG/M2;QD;PO
     Route: 048
     Dates: start: 20070418, end: 20070422
  3. TEMODAL (EMOZOLOMIDE) (TEMOZOLOMIDE) [Suspect]
     Indication: GLIOBLASTOMA MULTIFORME
     Dosage: 75 MG/M2;QD;PO; 150 MG/M2;QD;PO
     Route: 048
     Dates: start: 20070530, end: 20070603
  4. TEMODAL (EMOZOLOMIDE) (TEMOZOLOMIDE) [Suspect]
     Indication: GLIOBLASTOMA MULTIFORME
     Dosage: 75 MG/M2;QD;PO; 150 MG/M2;QD;PO
     Route: 048
     Dates: start: 20070627, end: 20070701
  5. AM [Concomitant]
  6. MAGNESIUM OXIDE (MAGNESIUM OXIDE) [Suspect]
     Indication: DRUG USE FOR UNKNOWN INDICATION
     Dosage: PO
     Route: 048
  7. LANSOPRAZOLE [Suspect]
     Indication: DRUG USE FOR UNKNOWN INDICATION
     Dosage: PO
     Route: 048

REACTIONS (2)
  - NEUTROPHIL COUNT DECREASED [None]
  - SUICIDE ATTEMPT [None]
